FAERS Safety Report 9325065 (Version 1)
Quarter: 2013Q2

REPORT INFORMATION
  Report Type: Report from Study
  Country: GB (occurrence: US)
  Receive Date: 20130603
  Receipt Date: 20130603
  Transmission Date: 20140414
  Serious: Yes (Hospitalization)
  Sender: FDA-Public Use
  Company Number: US-B.I. PHARMACEUTICALS,INC./RIDGEFIELD-2013-BI-15124GD

PATIENT
  Age: 63 Year
  Sex: Female

DRUGS (12)
  1. TIOTROPIUM [Suspect]
     Indication: CHRONIC OBSTRUCTIVE PULMONARY DISEASE
     Dosage: 18 MCG
     Route: 055
  2. NAPROXEN [Suspect]
     Indication: INTERVERTEBRAL DISC PROTRUSION
     Dosage: 2000 MG
     Dates: start: 1993
  3. FLUOXETINE [Concomitant]
     Dosage: 20 MG
     Route: 048
  4. OXYGEN [Concomitant]
  5. OXYBUTYNIN [Concomitant]
     Dosage: 40 MG
  6. L-THYROXINE [Concomitant]
     Dosage: 100 MCG
  7. METOPROLOL [Concomitant]
     Dosage: 100 MG
     Route: 048
  8. LISINOPRIL [Concomitant]
     Dosage: 10 MG
  9. ALBUTEROL [Concomitant]
  10. SYMBICORT [Concomitant]
     Route: 055
  11. DESYREL [Concomitant]
     Dosage: 50 MG
  12. HYDROCODONE [Concomitant]

REACTIONS (3)
  - Renal failure acute [Recovered/Resolved]
  - Pyelonephritis [Recovered/Resolved]
  - Nephrolithiasis [Recovered/Resolved]
